FAERS Safety Report 12450531 (Version 1)
Quarter: 2016Q2

REPORT INFORMATION
  Report Type: Spontaneous
  Country: US (occurrence: US)
  Receive Date: 20160609
  Receipt Date: 20160609
  Transmission Date: 20160815
  Serious: No
  Sender: FDA-Public Use
  Company Number: US-B. BRAUN MEDICAL INC.-1053573

PATIENT
  Age: 66 Year
  Sex: Female

DRUGS (5)
  1. GLUCOSE [Concomitant]
     Active Substance: DEXTROSE
     Route: 042
     Dates: start: 20160127, end: 20160210
  2. AMINO ACID NOS [Suspect]
     Active Substance: AMINO ACIDS
     Route: 042
     Dates: start: 20160210, end: 20160210
  3. INTRALIPID [Concomitant]
     Active Substance: EGG PHOSPHOLIPIDS\GLYCERIN\SOYBEAN OIL
     Route: 042
     Dates: start: 20160210, end: 20160225
  4. AMINO ACID NOS [Concomitant]
     Active Substance: AMINO ACIDS
     Route: 042
     Dates: start: 20160127, end: 20160209
  5. NUTRILIPID I.V. FAT EMULSION [Suspect]
     Active Substance: SOYBEAN OIL
     Indication: PARENTERAL NUTRITION
     Route: 042
     Dates: start: 20160226, end: 20160328

REACTIONS (4)
  - Blood alkaline phosphatase increased [None]
  - Alanine aminotransferase increased [None]
  - Aspartate aminotransferase increased [None]
  - Liver function test abnormal [None]
